FAERS Safety Report 9179151 (Version 1)
Quarter: 2013Q1

REPORT INFORMATION
  Report Type: Spontaneous
  Country: US (occurrence: US)
  Receive Date: 20130321
  Receipt Date: 20130321
  Transmission Date: 20140127
  Serious: Yes (Other)
  Sender: FDA-Public Use
  Company Number: US-GLAXOSMITHKLINE-A1009345A

PATIENT
  Age: 61 Year
  Sex: Male

DRUGS (4)
  1. VOTRIENT [Suspect]
     Indication: RENAL CELL CARCINOMA
     Dosage: 800MG PER DAY
     Route: 048
     Dates: start: 201202, end: 20130115
  2. DIOVAN [Concomitant]
  3. AMLODIPINE [Concomitant]
  4. ZYPREXA [Concomitant]

REACTIONS (3)
  - Malignant neoplasm progression [Unknown]
  - Lymphadenopathy [Unknown]
  - Hypertension [Unknown]
